FAERS Safety Report 13109168 (Version 1)
Quarter: 2017Q1

REPORT INFORMATION
  Report Type: Report from Study
  Country: None (occurrence: BR)
  Receive Date: 20170112
  Receipt Date: 20170112
  Transmission Date: 20170428
  Serious: Yes (Disabling, Other)
  Sender: FDA-Public Use
  Company Number: BR-ABBVIE-17P-020-1834607-00

PATIENT
  Sex: Male
  Weight: 70 kg

DRUGS (6)
  1. PROPATILNITRATE (SUSTRATE) (NON-ABBVIE) [Concomitant]
     Indication: CARDIAC DISORDER
     Route: 065
  2. HUMIRA [Suspect]
     Active Substance: ADALIMUMAB
     Indication: ANKYLOSING SPONDYLITIS
     Route: 058
     Dates: end: 201608
  3. AMIODARONE (NON-ABBVIE) [Concomitant]
     Indication: CARDIAC DISORDER
     Route: 065
  4. ACETYLSALICYLIC ACID (NON-ABBVIE) [Concomitant]
     Indication: CARDIAC DISORDER
  5. INSULIN (NON-ABBVIE) [Concomitant]
     Indication: DIABETES MELLITUS
     Route: 065
  6. CLOPIDOGREL (NON-ABBVIE) [Concomitant]
     Indication: CARDIAC DISORDER
     Route: 065

REACTIONS (1)
  - Inflammation [Recovered/Resolved]

NARRATIVE: CASE EVENT DATE: 2014
